FAERS Safety Report 7258288-8 (Version None)
Quarter: 2011Q1

REPORT INFORMATION
  Report Type: 
  Country: None (occurrence: None)
  Receive Date: 20110129
  Receipt Date: 20100713
  Transmission Date: 20110831
  Serious: No
  Sender: FDA-Public Use
  Company Number: US-ABBOTT-10P-163-0657912-00

PATIENT
  Sex: Female
  Weight: 107.6 kg

DRUGS (2)
  1. METHOTREXATE [Concomitant]
     Indication: PRODUCT USED FOR UNKNOWN INDICATION
     Dosage: 4ML EVERY WEEK
  2. HUMIRA [Suspect]
     Indication: ANKYLOSING SPONDYLITIS
     Dates: start: 20100201

REACTIONS (5)
  - ASTHMA [None]
  - INJECTION SITE PAIN [None]
  - BACK PAIN [None]
  - EAR INFECTION [None]
  - HYPERTONIC BLADDER [None]
